FAERS Safety Report 18589919 (Version 1)
Quarter: 2020Q4

REPORT INFORMATION
  Report Type: Spontaneous
  Country: US (occurrence: US)
  Receive Date: 20201207
  Receipt Date: 20201207
  Transmission Date: 20210114
  Serious: No
  Sender: FDA-Public Use
  Company Number: None

PATIENT
  Age: 64 Year
  Sex: Female

DRUGS (15)
  1. FENTANYL HR [Concomitant]
  2. GABAPENTIN. [Concomitant]
     Active Substance: GABAPENTIN
  3. HYDROCO/APAP [Concomitant]
     Active Substance: ACETAMINOPHEN\HYDROCODONE
  4. METFORMIN [Concomitant]
     Active Substance: METFORMIN HYDROCHLORIDE
  5. CITALOPRAM [Concomitant]
     Active Substance: CITALOPRAM HYDROBROMIDE
  6. ONDSENTRON [Concomitant]
  7. INSULIN ASPA FLEXPEN [Concomitant]
  8. ATORVASTATIN [Concomitant]
     Active Substance: ATORVASTATIN
  9. GLIMEPIRIDE. [Concomitant]
     Active Substance: GLIMEPIRIDE
  10. VERZENIO [Suspect]
     Active Substance: ABEMACICLIB
     Indication: BREAST CANCER
     Dosage: 1 TAB BID PO
     Route: 048
     Dates: start: 20201112
  11. JARDIANCE [Concomitant]
     Active Substance: EMPAGLIFLOZIN
  12. VENTOLIN HFA [Concomitant]
     Active Substance: ALBUTEROL SULFATE
  13. BYDUREON BC [Concomitant]
  14. LETROZOLE. [Concomitant]
     Active Substance: LETROZOLE
  15. METOCLOPRAM [Concomitant]
     Active Substance: METOCLOPRAMIDE

REACTIONS (2)
  - Diarrhoea [None]
  - Nausea [None]

NARRATIVE: CASE EVENT DATE: 20201205
